FAERS Safety Report 15704402 (Version 1)
Quarter: 2018Q4

REPORT INFORMATION
  Report Type: Spontaneous
  Country: US (occurrence: US)
  Receive Date: 20181127
  Receipt Date: 20181127
  Transmission Date: 20190205
  Serious: No
  Sender: FDA-Public Use
  Company Number: None

PATIENT
  Sex: Female

DRUGS (1)
  1. BELSOMRA [Suspect]
     Active Substance: SUVOREXANT
     Indication: INSOMNIA
     Route: 048
     Dates: start: 20161104, end: 20161113

REACTIONS (4)
  - Drug ineffective [None]
  - Feeling abnormal [None]
  - Mental impairment [None]
  - Product prescribing issue [None]

NARRATIVE: CASE EVENT DATE: 20161104
